FAERS Safety Report 12478263 (Version 2)
Quarter: 2016Q3

REPORT INFORMATION
  Report Type: Spontaneous
  Country: US (occurrence: US)
  Receive Date: 20160617
  Receipt Date: 20160706
  Transmission Date: 20161109
  Serious: No
  Sender: FDA-Public Use
  Company Number: US-009507513-1606USA004336

PATIENT
  Age: 29 Year
  Sex: Female
  Weight: 74.83 kg

DRUGS (3)
  1. NUVARING [Suspect]
     Active Substance: ETHINYL ESTRADIOL\ETONOGESTREL
     Indication: MENSTRUAL CYCLE MANAGEMENT
     Dosage: 1 DF, UNK
     Route: 067
     Dates: start: 20160523
  2. ADDERALL [Concomitant]
     Active Substance: AMPHETAMINE ASPARTATE\AMPHETAMINE SULFATE\DEXTROAMPHETAMINE SACCHARATE\DEXTROAMPHETAMINE SULFATE
     Indication: ATTENTION DEFICIT/HYPERACTIVITY DISORDER
  3. NUVARING [Suspect]
     Active Substance: ETHINYL ESTRADIOL\ETONOGESTREL
     Indication: CONTRACEPTION
     Dosage: 1 DF, CONTINUOUSLY
     Route: 067
     Dates: start: 2010

REACTIONS (6)
  - Menstruation normal [Unknown]
  - Ovarian cyst [Unknown]
  - Product use issue [Unknown]
  - Metrorrhagia [Unknown]
  - Accidental overdose [Unknown]
  - Endometriosis [Unknown]

NARRATIVE: CASE EVENT DATE: 201509
